FAERS Safety Report 22036650 (Version 1)
Quarter: 2023Q1

REPORT INFORMATION
  Report Type: Spontaneous
  Country: IT (occurrence: IT)
  Receive Date: 20230225
  Receipt Date: 20230225
  Transmission Date: 20230418
  Serious: Yes (Hospitalization)
  Sender: FDA-Public Use
  Company Number: None

PATIENT
  Age: 74 Year
  Sex: Female

DRUGS (6)
  1. OXALIPLATIN [Suspect]
     Active Substance: OXALIPLATIN
     Indication: Colon cancer
     Dosage: 130/MG/MQ
  2. CAPECITABINE [Suspect]
     Active Substance: CAPECITABINE
     Indication: Colon cancer
     Dosage: 3000 MG FOR 14 DAYS (DAYS 1-14) IN 2 INFUSIONS/DAY 12H APART WITHIN HALF AN?HOUR OF THE MEAL
  3. FLECAINIDE ACETATE [Concomitant]
     Active Substance: FLECAINIDE ACETATE
     Dosage: 100 MG
  4. HYDROCHLOROTHIAZIDE\RAMIPRIL [Concomitant]
     Active Substance: HYDROCHLOROTHIAZIDE\RAMIPRIL
     Dosage: 1 CPR/DAY
  5. BISOPROLOL [Concomitant]
     Active Substance: BISOPROLOL
  6. ASPIRIN [Concomitant]
     Active Substance: ASPIRIN

REACTIONS (5)
  - Faecaloma [Recovered/Resolved]
  - Constipation [Recovered/Resolved]
  - Nausea [Unknown]
  - Paraesthesia [Not Recovered/Not Resolved]
  - Diarrhoea [Recovered/Resolved]

NARRATIVE: CASE EVENT DATE: 20221223
